FAERS Safety Report 8610184-7 (Version None)
Quarter: 2012Q3

REPORT INFORMATION
  Report Type: 
  Country: None (occurrence: None)
  Receive Date: 20120822
  Receipt Date: 20120815
  Transmission Date: 20120928
  Serious: No
  Sender: FDA-Public Use
  Company Number: US-BIOGENIDEC-2012BI020610

PATIENT
  Sex: Female

DRUGS (4)
  1. AVONEX [Suspect]
     Route: 030
     Dates: start: 20120718
  2. COPAXONE [Concomitant]
  3. AVONEX [Suspect]
     Indication: MULTIPLE SCLEROSIS
     Route: 030
     Dates: start: 19970101
  4. AVONEX [Suspect]
     Route: 030
     Dates: start: 20101011, end: 20110311

REACTIONS (15)
  - COGNITIVE DISORDER [None]
  - GAIT DISTURBANCE [None]
  - BALANCE DISORDER [None]
  - PAIN [None]
  - MULTIPLE SCLEROSIS [None]
  - HEMIPARESIS [None]
  - INFLUENZA LIKE ILLNESS [None]
  - CHEST DISCOMFORT [None]
  - INJECTION SITE URTICARIA [None]
  - CHEST PAIN [None]
  - COUGH [None]
  - INJECTION SITE NECROSIS [None]
  - REACTION TO PRESERVATIVES [None]
  - SKIN ODOUR ABNORMAL [None]
  - INJECTION SITE HAEMATOMA [None]
